FAERS Safety Report 16646879 (Version 1)
Quarter: 2019Q3

REPORT INFORMATION
  Report Type: Spontaneous
  Country: NO (occurrence: NO)
  Receive Date: 20190730
  Receipt Date: 20190730
  Transmission Date: 20191004
  Serious: Yes (Hospitalization)
  Sender: FDA-Public Use
  Company Number: NO-PFIZER INC-2019319403

PATIENT
  Age: 40 Year
  Sex: Female
  Weight: 83 kg

DRUGS (7)
  1. KEPPRA [Concomitant]
     Active Substance: LEVETIRACETAM
     Dosage: UNK
     Dates: start: 20030630
  2. LEVAXIN [Concomitant]
     Active Substance: LEVOTHYROXINE SODIUM
     Dosage: UNK
     Dates: start: 20090601
  3. VITAMINERAL [Concomitant]
     Dosage: 1 DF, 1X/DAY
     Route: 048
  4. NIFEREX [FERROGLYCINE SULFATE COMPLEX] [Concomitant]
     Active Substance: FERROGLYCINE SULFATE
     Dosage: 100 MG, EVERY 3.5 DAYS
     Route: 048
  5. VITAMIN D [COLECALCIFEROL] [Concomitant]
     Active Substance: CHOLECALCIFEROL
     Dosage: 40 UG, 1X/DAY
  6. PARACET [PARACETAMOL] [Concomitant]
     Dosage: UNK
     Dates: start: 19930824
  7. ZELDOX [Suspect]
     Active Substance: ZIPRASIDONE
     Indication: PSYCHOTIC DISORDER
     Dosage: DAILY, THE PATIENT DOES NOT REMEMBER THE DOSE
     Dates: start: 20180221, end: 20180329

REACTIONS (3)
  - Peripheral swelling [Recovered/Resolved]
  - Obsessive thoughts [Not Recovered/Not Resolved]
  - Compulsions [Not Recovered/Not Resolved]

NARRATIVE: CASE EVENT DATE: 20180329
